FAERS Safety Report 8102933-1 (Version None)
Quarter: 2012Q1

REPORT INFORMATION
  Report Type: 
  Country: None (occurrence: None)
  Receive Date: 20120201
  Receipt Date: 20120123
  Transmission Date: 20120608
  Serious: Yes (Hospitalization)
  Sender: FDA-Public Use
  Company Number: JP-JNJFOC-20090406272

PATIENT
  Sex: Female

DRUGS (11)
  1. ISONIAZID [Concomitant]
     Indication: ANTIBIOTIC PROPHYLAXIS
     Route: 048
     Dates: start: 20051020, end: 20080218
  2. REMICADE [Suspect]
     Dosage: 1 INFUSION
     Route: 042
     Dates: start: 20070416
  3. PYDOXAL [Concomitant]
     Indication: HYPOVITAMINOSIS
     Route: 048
     Dates: start: 20051020, end: 20080218
  4. PREDNISOLONE [Concomitant]
     Indication: RHEUMATOID ARTHRITIS
     Dates: start: 20060319, end: 20080218
  5. GASMOTIN [Concomitant]
     Indication: GASTROENTERITIS
     Route: 048
     Dates: start: 20070331, end: 20080218
  6. CLARITHROMYCIN [Concomitant]
     Indication: BRONCHITIS CHRONIC
     Route: 048
     Dates: start: 20070710, end: 20080218
  7. REMICADE [Suspect]
     Indication: RHEUMATOID ARTHRITIS
     Dosage: TOTAL OF 2 INFUSIONS ADMINISTERED
     Route: 042
     Dates: start: 20080206
  8. ASPIRIN [Concomitant]
     Indication: ANGINA PECTORIS
     Route: 048
     Dates: start: 20021229, end: 20080218
  9. ARAVA [Suspect]
     Indication: RHEUMATOID ARTHRITIS
     Route: 048
     Dates: start: 20070628, end: 20080218
  10. CORTICOSTEROIDS [Suspect]
     Indication: PRODUCT USED FOR UNKNOWN INDICATION
     Route: 065
  11. FAMOTIDINE [Concomitant]
     Indication: GASTRITIS
     Route: 048
     Dates: start: 20080218

REACTIONS (1)
  - CYTOMEGALOVIRUS GASTROENTERITIS [None]
